FAERS Safety Report 24725320 (Version 1)
Quarter: 2024Q4

REPORT INFORMATION
  Report Type: Spontaneous
  Country: CA (occurrence: CA)
  Receive Date: 20241212
  Receipt Date: 20241212
  Transmission Date: 20250114
  Serious: Yes (Other)
  Sender: TEVA
  Company Number: CA-TEVA-VS-3272458

PATIENT
  Age: 70 Year
  Sex: Male

DRUGS (1)
  1. PREDNISONE [Suspect]
     Active Substance: PREDNISONE
     Indication: Colitis ulcerative
     Route: 065
     Dates: start: 202403

REACTIONS (3)
  - Colitis ulcerative [Unknown]
  - Weight decreased [Unknown]
  - Colitis [Unknown]

NARRATIVE: CASE EVENT DATE: 20240101
